FAERS Safety Report 16547938 (Version 1)
Quarter: 2019Q3

REPORT INFORMATION
  Report Type: Spontaneous
  Country: US (occurrence: US)
  Receive Date: 20190709
  Receipt Date: 20190709
  Transmission Date: 20191004
  Serious: No
  Sender: FDA-Public Use
  Company Number: US-ASTELLAS-2019US012602

PATIENT
  Age: 71 Year
  Sex: Female

DRUGS (1)
  1. MYRBETRIQ [Suspect]
     Active Substance: MIRABEGRON
     Indication: PRODUCT USED FOR UNKNOWN INDICATION
     Route: 065
     Dates: start: 20190118, end: 201902

REACTIONS (7)
  - Dyspnoea [Unknown]
  - Cough [Unknown]
  - Viral infection [Recovering/Resolving]
  - Pollakiuria [Unknown]
  - Drug ineffective [Unknown]
  - Micturition urgency [Unknown]
  - Urinary incontinence [Unknown]
